FAERS Safety Report 11180130 (Version 1)
Quarter: 2015Q2

REPORT INFORMATION
  Report Type: Spontaneous
  Country: US (occurrence: None)
  Receive Date: 20150610
  Receipt Date: 20150610
  Transmission Date: 20150821
  Serious: No
  Sender: FDA-Public Use
  Company Number: None

PATIENT
  Age: 44 Year
  Sex: Male

DRUGS (2)
  1. SUTENT [Suspect]
     Active Substance: SUNITINIB MALATE
     Dosage: 37.5MG (12.5MG + 25MG) QD X 28 DAYS-OFF 14 DAY PO
     Route: 048
     Dates: start: 20150218
  2. SUTENT [Suspect]
     Active Substance: SUNITINIB MALATE
     Dosage: 37.5MG (12.5MG + 25MG) QD 28 DAYS-OFF 14 DAYS PO
     Route: 048
     Dates: start: 20150219

REACTIONS (2)
  - Blood urine present [None]
  - Skin disorder [None]

NARRATIVE: CASE EVENT DATE: 20150606
